FAERS Safety Report 23102057 (Version 3)
Quarter: 2024Q2

REPORT INFORMATION
  Report Type: Spontaneous
  Country: CA (occurrence: CA)
  Receive Date: 20231025
  Receipt Date: 20240516
  Transmission Date: 20240716
  Serious: Yes (Other)
  Sender: FDA-Public Use
  Company Number: CA-002147023-NVSC2020CA127828

PATIENT
  Age: 55 Year
  Sex: Female

DRUGS (70)
  1. AMLODIPINE [Suspect]
     Active Substance: AMLODIPINE BESYLATE
     Indication: Congenital cystic kidney disease
     Dosage: 10 MG, QD
     Route: 065
  2. AIMOVIG [Suspect]
     Active Substance: ERENUMAB-AOOE
     Indication: Migraine
     Dosage: 140 MG, QMO
     Route: 058
     Dates: start: 20200210
  3. AIMOVIG [Suspect]
     Active Substance: ERENUMAB-AOOE
     Dosage: 140 MG, QMO
     Route: 058
  4. AIMOVIG [Suspect]
     Active Substance: ERENUMAB-AOOE
     Dosage: 140 MG, QMO
     Route: 058
  5. AIMOVIG [Suspect]
     Active Substance: ERENUMAB-AOOE
     Dosage: 140 MG, QMO
     Route: 058
  6. AIMOVIG [Suspect]
     Active Substance: ERENUMAB-AOOE
     Dosage: 140 MG, QMO
     Route: 058
  7. AIMOVIG [Suspect]
     Active Substance: ERENUMAB-AOOE
     Dosage: 140 MG, QMO
     Route: 065
  8. CANDESARTAN [Suspect]
     Active Substance: CANDESARTAN
     Dosage: 14 MG
     Route: 048
  9. CANDESARTAN [Suspect]
     Active Substance: CANDESARTAN
     Dosage: 16 MG, QD
     Route: 065
  10. CANDESARTAN [Suspect]
     Active Substance: CANDESARTAN
     Indication: Blood pressure abnormal
     Dosage: 16 MG
     Route: 048
  11. CANDESARTAN [Suspect]
     Active Substance: CANDESARTAN
     Indication: Congenital cystic kidney disease
     Dosage: 16 MG
     Route: 048
  12. CANDESARTAN [Suspect]
     Active Substance: CANDESARTAN
     Indication: Migraine
     Dosage: 16 MG
     Route: 048
  13. CANDESARTAN [Suspect]
     Active Substance: CANDESARTAN
     Dosage: 16 MG
     Route: 048
  14. CANDESARTAN [Suspect]
     Active Substance: CANDESARTAN
     Dosage: 16 MG
     Route: 048
  15. CANDESARTAN [Suspect]
     Active Substance: CANDESARTAN
     Dosage: 16 MG
     Route: 048
  16. CANDESARTAN [Suspect]
     Active Substance: CANDESARTAN
     Dosage: 8 MG
     Route: 048
  17. CANDESARTAN [Suspect]
     Active Substance: CANDESARTAN
     Dosage: 8 MG
     Route: 048
  18. CANDESARTAN [Suspect]
     Active Substance: CANDESARTAN
     Dosage: 8 MG
     Route: 048
  19. CANDESARTAN [Suspect]
     Active Substance: CANDESARTAN
     Dosage: 8 MG
     Route: 048
  20. CANDESARTAN [Suspect]
     Active Substance: CANDESARTAN
     Dosage: 8 MG
     Route: 048
  21. CANDESARTAN [Suspect]
     Active Substance: CANDESARTAN
     Dosage: 8 MG
     Route: 048
  22. CANDESARTAN [Suspect]
     Active Substance: CANDESARTAN
     Dosage: 8 MG
     Route: 048
  23. CANDESARTAN [Suspect]
     Active Substance: CANDESARTAN
     Dosage: 8 MG
     Route: 048
  24. CANDESARTAN [Suspect]
     Active Substance: CANDESARTAN
     Dosage: 8 MG
     Route: 048
  25. CANDESARTAN [Suspect]
     Active Substance: CANDESARTAN
     Dosage: 8 MG
     Route: 048
  26. CANDESARTAN [Suspect]
     Active Substance: CANDESARTAN
     Dosage: 8 MG
     Route: 048
  27. CANDESARTAN [Suspect]
     Active Substance: CANDESARTAN
     Dosage: 8 MG
     Route: 048
  28. CANDESARTAN CILEXETIL [Suspect]
     Active Substance: CANDESARTAN CILEXETIL
     Indication: Blood pressure abnormal
     Dosage: 16 MG
     Route: 048
  29. CANDESARTAN CILEXETIL [Suspect]
     Active Substance: CANDESARTAN CILEXETIL
     Dosage: 16 MG
     Route: 048
  30. CANDESARTAN CILEXETIL [Suspect]
     Active Substance: CANDESARTAN CILEXETIL
     Dosage: 16 MG
     Route: 048
  31. CANDESARTAN CILEXETIL [Suspect]
     Active Substance: CANDESARTAN CILEXETIL
     Dosage: 16 MG
     Route: 048
  32. CANDESARTAN CILEXETIL [Suspect]
     Active Substance: CANDESARTAN CILEXETIL
     Dosage: 16 MG
     Route: 048
  33. CANDESARTAN CILEXETIL [Suspect]
     Active Substance: CANDESARTAN CILEXETIL
     Dosage: 16 MG
     Route: 048
  34. CANDESARTAN CILEXETIL [Suspect]
     Active Substance: CANDESARTAN CILEXETIL
     Dosage: 16 MG
     Route: 048
  35. CANDESARTAN CILEXETIL [Suspect]
     Active Substance: CANDESARTAN CILEXETIL
     Dosage: 16 MG
     Route: 048
  36. CANDESARTAN CILEXETIL [Suspect]
     Active Substance: CANDESARTAN CILEXETIL
     Dosage: 8 MG, QD
     Route: 065
  37. CANDESARTAN CILEXETIL [Suspect]
     Active Substance: CANDESARTAN CILEXETIL
     Indication: Migraine
     Dosage: 8 MG
     Route: 048
     Dates: start: 20200210
  38. CANDESARTAN CILEXETIL [Suspect]
     Active Substance: CANDESARTAN CILEXETIL
     Dosage: 8 MG
     Route: 048
  39. CANDESARTAN CILEXETIL [Suspect]
     Active Substance: CANDESARTAN CILEXETIL
     Dosage: 8 MG
     Route: 048
  40. CANDESARTAN CILEXETIL [Suspect]
     Active Substance: CANDESARTAN CILEXETIL
     Dosage: 8 MG
     Route: 048
  41. CANDESARTAN CILEXETIL [Suspect]
     Active Substance: CANDESARTAN CILEXETIL
     Dosage: 8 MG
     Route: 048
  42. CANDESARTAN CILEXETIL [Suspect]
     Active Substance: CANDESARTAN CILEXETIL
     Dosage: 8 MG
     Route: 048
  43. CANDESARTAN CILEXETIL [Suspect]
     Active Substance: CANDESARTAN CILEXETIL
     Dosage: 8 MG
     Route: 048
  44. CANDESARTAN CILEXETIL [Suspect]
     Active Substance: CANDESARTAN CILEXETIL
     Dosage: 8 MG
     Route: 048
  45. CANDESARTAN CILEXETIL [Suspect]
     Active Substance: CANDESARTAN CILEXETIL
     Dosage: 8 MG
     Route: 048
  46. CANDESARTAN CILEXETIL [Suspect]
     Active Substance: CANDESARTAN CILEXETIL
     Dosage: 8 MG
     Route: 048
  47. CANDESARTAN CILEXETIL [Suspect]
     Active Substance: CANDESARTAN CILEXETIL
     Dosage: 8 MG
     Route: 048
  48. FLUOXETINE HYDROCHLORIDE [Suspect]
     Active Substance: FLUOXETINE HYDROCHLORIDE
     Indication: Migraine
     Dosage: 20 MG
     Route: 065
     Dates: start: 20200210
  49. HYDROCHLOROTHIAZIDE [Suspect]
     Active Substance: HYDROCHLOROTHIAZIDE
     Indication: Congenital cystic kidney disease
     Dosage: 12.5 MG, QD
     Route: 065
  50. PANTOPRAZOLE SODIUM [Suspect]
     Active Substance: PANTOPRAZOLE SODIUM
     Dosage: 40 MG, Q12H
     Route: 065
  51. PANTOPRAZOLE SODIUM [Suspect]
     Active Substance: PANTOPRAZOLE SODIUM
     Indication: Migraine
     Dosage: 40 MG, BID
     Route: 042
     Dates: start: 20200210
  52. PANTOPRAZOLE SODIUM [Suspect]
     Active Substance: PANTOPRAZOLE SODIUM
     Dosage: 40 MG, BID
     Route: 065
  53. TOPIRAMATE [Suspect]
     Active Substance: TOPIRAMATE
     Indication: Migraine
     Dosage: UNK
     Route: 042
     Dates: start: 20200210
  54. TOPIRAMATE [Suspect]
     Active Substance: TOPIRAMATE
     Dosage: UNK
     Route: 065
  55. CRESTOR [Concomitant]
     Active Substance: ROSUVASTATIN CALCIUM
     Indication: Product used for unknown indication
     Dosage: 10 MG
     Route: 065
  56. FERROUS FUMARATE [Concomitant]
     Active Substance: FERROUS FUMARATE
     Indication: Product used for unknown indication
     Dosage: 300 MG
     Route: 065
  57. FERROUS FUMARATE [Concomitant]
     Active Substance: FERROUS FUMARATE
     Dosage: 300 MG
     Route: 065
  58. IRON [Concomitant]
     Active Substance: IRON
     Indication: Product used for unknown indication
     Dosage: 300 MG
     Route: 065
  59. MODAFINIL [Concomitant]
     Active Substance: MODAFINIL
     Dosage: 100 MG, Q12H
     Route: 065
  60. MODAFINIL [Concomitant]
     Active Substance: MODAFINIL
     Indication: Product used for unknown indication
     Dosage: 100 MG, BID
     Route: 065
  61. MODAFINIL [Concomitant]
     Active Substance: MODAFINIL
     Dosage: 100 MG, BID
     Route: 065
  62. NAPROXEN [Concomitant]
     Active Substance: NAPROXEN
     Dosage: 500 MG
     Route: 065
  63. NAPROXEN [Concomitant]
     Active Substance: NAPROXEN
     Indication: Product used for unknown indication
     Dosage: 500 MG, PRN
     Route: 065
  64. OSTO-D2 [Concomitant]
     Dosage: 1 DOSAGE FORM, QW
     Route: 065
  65. OSTO-D2 [Concomitant]
     Dosage: 1 DOSAGE FORM, QW
     Route: 065
  66. OSTO-D2 [Concomitant]
     Dosage: 1 DOSAGE FORM, QW
     Route: 065
  67. OSTO-D2 [Concomitant]
     Indication: Product used for unknown indication
     Dosage: 50000 IU, QW
     Route: 065
  68. OSTO-D2 [Concomitant]
     Dosage: UNK, QW
     Route: 065
  69. OSTO-D2 [Concomitant]
     Dosage: UNK, QD
     Route: 065
  70. ROSUVASTATIN CALCIUM [Concomitant]
     Active Substance: ROSUVASTATIN CALCIUM
     Indication: Product used for unknown indication
     Route: 065

REACTIONS (21)
  - Hypertension [Recovering/Resolving]
  - Heart rate abnormal [Recovering/Resolving]
  - Blood pressure measurement [Recovering/Resolving]
  - Dysstasia [Recovering/Resolving]
  - Pain of skin [Recovering/Resolving]
  - Hypoaesthesia oral [Recovering/Resolving]
  - Photophobia [Recovering/Resolving]
  - Eye pain [Recovering/Resolving]
  - Drug intolerance [Recovering/Resolving]
  - Off label use [Recovering/Resolving]
  - Concussion [Recovering/Resolving]
  - Fall [Recovering/Resolving]
  - Migraine [Recovering/Resolving]
  - Product use in unapproved indication [Recovering/Resolving]
  - Blood pressure fluctuation [Recovering/Resolving]
  - Nausea [Recovering/Resolving]
  - Swelling face [Recovering/Resolving]
  - Headache [Recovering/Resolving]
  - Therapeutic product effect decreased [Recovering/Resolving]
  - Drug ineffective [Unknown]
  - Drug ineffective for unapproved indication [Recovering/Resolving]

NARRATIVE: CASE EVENT DATE: 20200215
